FAERS Safety Report 19442974 (Version 1)
Quarter: 2021Q2

REPORT INFORMATION
  Report Type: Spontaneous
  Country: US (occurrence: US)
  Receive Date: 20210620
  Receipt Date: 20210620
  Transmission Date: 20210717
  Serious: Yes (Other)
  Sender: FDA-Public Use
  Company Number: None

PATIENT
  Age: 38 Year
  Sex: Female
  Weight: 60 kg

DRUGS (6)
  1. PREDNISONE. [Concomitant]
     Active Substance: PREDNISONE
  2. VITAMIN C [Concomitant]
     Active Substance: ASCORBIC ACID
  3. LORATIDINE [Concomitant]
     Active Substance: LORATADINE
  4. VITAMIN D [Concomitant]
     Active Substance: VITAMIN D NOS
  5. DRONABINOL (MEDICAL MARIJUANA) [Suspect]
     Active Substance: DRONABINOL
     Indication: ACCIDENTAL EXPOSURE TO PRODUCT
     Route: 055
     Dates: start: 20191101, end: 20210620
  6. METHOTREXATE. [Concomitant]
     Active Substance: METHOTREXATE

REACTIONS (5)
  - Asthma [None]
  - Feeling abnormal [None]
  - Oropharyngeal pain [None]
  - Lymphadenopathy [None]
  - Sinus disorder [None]

NARRATIVE: CASE EVENT DATE: 20191110
